FAERS Safety Report 24358304 (Version 1)
Quarter: 2024Q3

REPORT INFORMATION
  Report Type: Spontaneous
  Country: US (occurrence: US)
  Receive Date: 20240924
  Receipt Date: 20240924
  Transmission Date: 20241017
  Serious: Yes (Other)
  Sender: DAIICHI
  Company Number: US-DAIICHI SANKYO, INC.-DS-2024-100243-USAA

PATIENT
  Age: 62 Year
  Sex: Female

DRUGS (1)
  1. ENHERTU [Suspect]
     Active Substance: FAM-TRASTUZUMAB DERUXTECAN-NXKI
     Indication: Uterine cancer
     Dosage: UNK
     Route: 065

REACTIONS (2)
  - Pneumonitis [Recovering/Resolving]
  - Dyspnoea [Recovering/Resolving]
